FAERS Safety Report 20469899 (Version 1)
Quarter: 2022Q1

REPORT INFORMATION
  Report Type: Spontaneous
  Country: US (occurrence: US)
  Receive Date: 20220214
  Receipt Date: 20220214
  Transmission Date: 20220423
  Serious: Yes (Other)
  Sender: FDA-Public Use
  Company Number: US-PFIZER INC-202200194009

PATIENT
  Age: 38 Year
  Sex: Male

DRUGS (1)
  1. ZYVOX [Suspect]
     Active Substance: LINEZOLID
     Dosage: 600 MG, EVERY 12 HOURS
     Route: 048

REACTIONS (4)
  - Localised infection [Unknown]
  - Extremity necrosis [Unknown]
  - Staphylococcal infection [Unknown]
  - Cellulitis [Unknown]
